FAERS Safety Report 7995204-5 (Version None)
Quarter: 2011Q4

REPORT INFORMATION
  Report Type: 
  Country: None (occurrence: None)
  Receive Date: 20111220
  Receipt Date: 20111216
  Transmission Date: 20120403
  Serious: Yes (Other)
  Sender: FDA-Public Use
  Company Number: US-PFIZER INC-2011298984

PATIENT
  Sex: Female
  Weight: 79 kg

DRUGS (3)
  1. IBUPROFEN [Suspect]
     Indication: PAIN IN EXTREMITY
     Dosage: 200 MG, AS NEEDED
  2. IBUPROFEN [Suspect]
     Indication: ARTHRALGIA
  3. AROMASIN [Suspect]
     Indication: BREAST CANCER
     Dosage: UNK, DAILY
     Dates: start: 20110701, end: 20111101

REACTIONS (3)
  - ABDOMINAL DISCOMFORT [None]
  - ARTHRALGIA [None]
  - PAIN IN EXTREMITY [None]
